FAERS Safety Report 17874947 (Version 2)
Quarter: 2021Q1

REPORT INFORMATION
  Report Type: Spontaneous
  Country: US (occurrence: US)
  Receive Date: 20200609
  Receipt Date: 20210112
  Transmission Date: 20210419
  Serious: No
  Sender: FDA-Public Use
  Company Number: US-PFIZER INC-2020224179

PATIENT
  Age: 63 Year
  Sex: Female

DRUGS (2)
  1. IBRANCE [Suspect]
     Active Substance: PALBOCICLIB
     Dosage: 125 MG, CYCLIC(21 DAYS ON THEN SHE WAS OFF TIL NOW AND TO RESTART)
     Dates: start: 20191116
  2. IBRANCE [Suspect]
     Active Substance: PALBOCICLIB
     Dosage: UNK
     Dates: start: 20201229

REACTIONS (4)
  - Inappropriate schedule of product administration [Unknown]
  - Influenza [Unknown]
  - Illness [Unknown]
  - Vomiting [Unknown]
